FAERS Safety Report 11224259 (Version 2)
Quarter: 2015Q3

REPORT INFORMATION
  Report Type: Spontaneous
  Country: BR (occurrence: BR)
  Receive Date: 20150629
  Receipt Date: 20150708
  Transmission Date: 20151125
  Serious: Yes (Other)
  Sender: FDA-Public Use
  Company Number: BR-SA-2015SA091096

PATIENT
  Age: 10 Year
  Sex: Female
  Weight: 27 kg

DRUGS (6)
  1. TYLENOL [Concomitant]
     Active Substance: ACETAMINOPHEN
     Indication: PYREXIA
     Dosage: FREQUENCY: 6/6 HOURS
     Route: 048
     Dates: start: 20150619
  2. AEROLIN [Concomitant]
     Active Substance: ALBUTEROL
     Indication: ASTHMA
     Dosage: START DATE: SINCE BIRTH?DOSE: 4 JETS?FREQUENCY: 6/6 HOURS
     Route: 055
  3. ALENIA [Concomitant]
     Active Substance: BUDESONIDE\FORMOTEROL FUMARATE
     Dosage: START DATE: SINCE BIRTH?DOSE: 1 JET?FREQUENCY: 12/12 HOURS
     Route: 055
  4. OMNARIS [Concomitant]
     Active Substance: CICLESONIDE
     Indication: RHINITIS
     Dosage: START DATE: SINCE BIRTH?DOSE: 2 JETS?FREQUENCY: 12/12 HOURS
     Route: 055
  5. ALLEGRA PEDIATRICO [Suspect]
     Active Substance: FEXOFENADINE HYDROCHLORIDE
     Indication: BRONCHITIS
     Route: 048
     Dates: start: 20150619
  6. AZITHROMYCIN [Concomitant]
     Active Substance: AZITHROMYCIN ANHYDROUS
     Indication: LUNG INFECTION
     Route: 048
     Dates: start: 20150619

REACTIONS (4)
  - Oxygen saturation decreased [Recovered/Resolved]
  - Somnolence [Recovered/Resolved]
  - Mood altered [Recovered/Resolved]
  - Incorrect dose administered [Unknown]

NARRATIVE: CASE EVENT DATE: 201506
